FAERS Safety Report 26024455 (Version 1)
Quarter: 2025Q4

REPORT INFORMATION
  Report Type: Spontaneous
  Country: US (occurrence: US)
  Receive Date: 20251111
  Receipt Date: 20251111
  Transmission Date: 20260118
  Serious: No
  Sender: ELI LILLY AND COMPANY
  Company Number: US-ELI_LILLY_AND_COMPANY-US202511009611

PATIENT
  Age: 75 Year
  Sex: Female

DRUGS (2)
  1. EMGALITY [Suspect]
     Active Substance: GALCANEZUMAB-GNLM
     Indication: Product used for unknown indication
     Dosage: 1 PEN, OTHER (LOADING DOSE)
     Route: 065
     Dates: start: 20251030
  2. EMGALITY [Suspect]
     Active Substance: GALCANEZUMAB-GNLM
     Dosage: 1 PEN, OTHER (LOADING DOSE)
     Route: 065
     Dates: start: 20251030

REACTIONS (1)
  - Dry eye [Unknown]
